FAERS Safety Report 17139223 (Version 2)
Quarter: 2022Q1

REPORT INFORMATION
  Report Type: Spontaneous
  Country: CN (occurrence: CN)
  Receive Date: 20191211
  Receipt Date: 20220307
  Transmission Date: 20220424
  Serious: Yes (Death, Other)
  Sender: FDA-Public Use
  Company Number: CN-SUN PHARMACEUTICAL INDUSTRIES LTD-2019R1-230028

PATIENT
  Age: 65 Year
  Sex: Male

DRUGS (3)
  1. VALACYCLOVIR [Suspect]
     Active Substance: VALACYCLOVIR HYDROCHLORIDE
     Indication: Herpes zoster
     Dosage: UNK
     Route: 065
  2. ACYCLOVIR [Suspect]
     Active Substance: ACYCLOVIR
     Indication: Product used for unknown indication
     Dosage: UNK
     Route: 065
  3. DEXAMETHASONE [Concomitant]
     Active Substance: DEXAMETHASONE
     Indication: Pain
     Dosage: 5 MILLIGRAM, QD
     Route: 065

REACTIONS (3)
  - Overdose [Fatal]
  - Depressed level of consciousness [Unknown]
  - Mental disorder [Unknown]
